FAERS Safety Report 7249803-9 (Version None)
Quarter: 2011Q1

REPORT INFORMATION
  Report Type: 
  Country: None (occurrence: None)
  Receive Date: 20110128
  Receipt Date: 20100413
  Transmission Date: 20110831
  Serious: No
  Sender: FDA-Public Use
  Company Number: A0855314A

PATIENT
  Sex: Female

DRUGS (2)
  1. BUPROPION HCL [Suspect]
     Route: 065
  2. WELLBUTRIN [Concomitant]
     Route: 065

REACTIONS (1)
  - DRUG INEFFECTIVE [None]
